FAERS Safety Report 19895608 (Version 1)
Quarter: 2021Q3

REPORT INFORMATION
  Report Type: Spontaneous
  Country: US (occurrence: US)
  Receive Date: 20210929
  Receipt Date: 20210929
  Transmission Date: 20211014
  Serious: Yes (Hospitalization)
  Sender: FDA-Public Use
  Company Number: None

PATIENT
  Age: 61 Year
  Sex: Male
  Weight: 122.7 kg

DRUGS (1)
  1. CIDOFOVIR. [Suspect]
     Active Substance: CIDOFOVIR
     Indication: POLYOMAVIRUS VIRAEMIA
     Dates: start: 20210914, end: 20210927

REACTIONS (5)
  - Acute kidney injury [None]
  - Blood potassium increased [None]
  - Nephropathy toxic [None]
  - Therapy cessation [None]
  - Blood phosphorus increased [None]

NARRATIVE: CASE EVENT DATE: 20210927
